FAERS Safety Report 15520080 (Version 1)
Quarter: 2018Q4

REPORT INFORMATION
  Report Type: Spontaneous
  Country: US (occurrence: US)
  Receive Date: 20181017
  Receipt Date: 20181017
  Transmission Date: 20190205
  Serious: Yes (Death)
  Sender: FDA-Public Use
  Company Number: US-FRESENIUS KABI-FK201810795

PATIENT
  Sex: Male

DRUGS (9)
  1. TRAZODONE [Suspect]
     Active Substance: TRAZODONE HYDROCHLORIDE
     Dosage: CLINCAL DAY 2
     Route: 065
  2. HYDROXYZINE [Concomitant]
     Active Substance: HYDROXYZINE HYDROCHLORIDE
     Dosage: CLINICAL DAY 2
     Route: 065
  3. METHADONE [Suspect]
     Active Substance: METHADONE HYDROCHLORIDE
     Indication: DRUG DETOXIFICATION
     Dosage: 20 MG INITIAL DOSE FOLLOWED BY 3 DOSES OF 10 MG ADMINISTERED ORALLY AT 6-8-HOUR INTERVALS ON CLINICA
     Route: 048
  4. METHADONE [Suspect]
     Active Substance: METHADONE HYDROCHLORIDE
     Dosage: CLINICAL DAY 2
     Route: 048
  5. HYDROXYZINE [Concomitant]
     Active Substance: HYDROXYZINE HYDROCHLORIDE
     Indication: PRODUCT USED FOR UNKNOWN INDICATION
     Dosage: CLINICAL DAY 1
     Route: 065
  6. ONDANSETRON (MANUFACTURER UNKNOWN) [Suspect]
     Active Substance: ONDANSETRON
     Indication: VOMITING
     Route: 030
  7. CHLORDIAZEPOXIDE. [Concomitant]
     Active Substance: CHLORDIAZEPOXIDE
     Dosage: CLINCAL DAY 2
     Route: 065
  8. CHLORDIAZEPOXIDE. [Concomitant]
     Active Substance: CHLORDIAZEPOXIDE
     Indication: PRODUCT USED FOR UNKNOWN INDICATION
     Dosage: CLINCAL DAY 1
     Route: 065
  9. TRAZODONE [Suspect]
     Active Substance: TRAZODONE HYDROCHLORIDE
     Indication: PRODUCT USED FOR UNKNOWN INDICATION
     Dosage: CLINCAL DAY 1
     Route: 065

REACTIONS (3)
  - Hypoglycaemia [Fatal]
  - Ventricular tachyarrhythmia [Fatal]
  - Condition aggravated [Fatal]
